FAERS Safety Report 12733322 (Version 1)
Quarter: 2016Q3

REPORT INFORMATION
  Report Type: Report from Study
  Country: US (occurrence: US)
  Receive Date: 20160912
  Receipt Date: 20160912
  Transmission Date: 20161109
  Serious: Yes (Death)
  Sender: FDA-Public Use
  Company Number: US-009507513-1609USA004229

PATIENT
  Sex: Male

DRUGS (2)
  1. KEYTRUDA [Suspect]
     Active Substance: PEMBROLIZUMAB
     Indication: COLON CANCER
     Route: 065
  2. YERVOY [Concomitant]
     Active Substance: IPILIMUMAB
     Indication: COLON CANCER

REACTIONS (2)
  - Therapy non-responder [Fatal]
  - Off label use [Unknown]
